FAERS Safety Report 14396010 (Version 1)
Quarter: 2018Q1

REPORT INFORMATION
  Report Type: Spontaneous
  Country: JP (occurrence: JP)
  Receive Date: 20180116
  Receipt Date: 20180116
  Transmission Date: 20180509
  Serious: Yes (Other)
  Sender: FDA-Public Use
  Company Number: JP-FRESENIUS KABI-FK201800446

PATIENT
  Age: 59 Year
  Sex: Female

DRUGS (4)
  1. PREDNISOLONE (MANUFACTURER UNKNOWN) [Suspect]
     Active Substance: PREDNISOLONE
     Route: 048
  2. METHYLPREDNISOLONE (MANUFACTURER UNKNOWN) [Suspect]
     Active Substance: METHYLPREDNISOLONE
     Indication: NEUROMYELITIS OPTICA SPECTRUM DISORDER
     Route: 042
  3. PREDNISOLONE (MANUFACTURER UNKNOWN) [Suspect]
     Active Substance: PREDNISOLONE
     Route: 048
  4. PREDNISOLONE (MANUFACTURER UNKNOWN) [Suspect]
     Active Substance: PREDNISOLONE
     Indication: NEUROMYELITIS OPTICA SPECTRUM DISORDER
     Route: 048

REACTIONS (3)
  - Haemorrhage intracranial [Recovering/Resolving]
  - Rebound effect [Recovering/Resolving]
  - Neuromyelitis optica spectrum disorder [Recovering/Resolving]
